FAERS Safety Report 9718248 (Version 1)
Quarter: 2013Q4

REPORT INFORMATION
  Report Type: Spontaneous
  Country: US (occurrence: US)
  Receive Date: 20131125
  Receipt Date: 20131125
  Transmission Date: 20140711
  Serious: No
  Sender: FDA-Public Use
  Company Number: US-VIVUS-2013V1000130

PATIENT
  Age: 43 Year
  Sex: Female

DRUGS (5)
  1. QSYMIA 7.5MG/46MG [Suspect]
     Indication: WEIGHT DECREASED
     Route: 048
     Dates: start: 20130216
  2. QSYMIA 3.75MG/23MG [Suspect]
     Indication: WEIGHT DECREASED
     Route: 048
     Dates: start: 20130202, end: 20130215
  3. NEXIUM [Concomitant]
     Indication: GASTROOESOPHAGEAL REFLUX DISEASE
     Route: 048
     Dates: start: 2011
  4. PREMARIN [Concomitant]
     Indication: HORMONE REPLACEMENT THERAPY
     Route: 048
     Dates: start: 2011
  5. ALLEGRA [Concomitant]
     Indication: HYPERSENSITIVITY
     Dosage: DAILY DOSE: 1 TABLET,
     Route: 048
     Dates: start: 2011

REACTIONS (2)
  - Bronchitis [Not Recovered/Not Resolved]
  - Paraesthesia [Recovering/Resolving]
